FAERS Safety Report 14498765 (Version 1)
Quarter: 2018Q1

REPORT INFORMATION
  Report Type: Report from Study
  Country: US (occurrence: US)
  Receive Date: 20180207
  Receipt Date: 20180207
  Transmission Date: 20180509
  Serious: Yes (Hospitalization, Other)
  Sender: FDA-Public Use
  Company Number: US-ARIAD-2016US006907

PATIENT
  Sex: Male

DRUGS (6)
  1. PONATINIB [Suspect]
     Active Substance: PONATINIB
     Indication: CHRONIC MYELOID LEUKAEMIA
     Dosage: 30 MG, QD
     Route: 048
     Dates: start: 20160815
  2. PONATINIB [Suspect]
     Active Substance: PONATINIB
     Dosage: 30 MG, QD
     Route: 048
  3. PONATINIB [Suspect]
     Active Substance: PONATINIB
     Dosage: 30 MG, QD
     Route: 048
     Dates: start: 201608
  4. PONATINIB [Suspect]
     Active Substance: PONATINIB
     Dosage: 30 MG, QD
     Route: 048
  5. PONATINIB [Suspect]
     Active Substance: PONATINIB
     Dosage: 30 MG, QD
     Route: 048
  6. PONATINIB [Suspect]
     Active Substance: PONATINIB
     Dosage: 30 MG, QD
     Route: 048

REACTIONS (15)
  - Thrombocytopenia [Unknown]
  - Insomnia [Not Recovered/Not Resolved]
  - Pancreatitis [Recovered/Resolved]
  - Sedation [Unknown]
  - Skin infection [Not Recovered/Not Resolved]
  - Constipation [Recovered/Resolved]
  - Iron overload [Unknown]
  - Cough [Not Recovered/Not Resolved]
  - Fluid overload [Unknown]
  - Anaemia [Unknown]
  - Abdominal pain [Unknown]
  - Rash pruritic [Not Recovered/Not Resolved]
  - Anxiety [Unknown]
  - Cardiac failure congestive [Not Recovered/Not Resolved]
  - Cardiomegaly [Unknown]
